FAERS Safety Report 8339181-6 (Version None)
Quarter: 2012Q2

REPORT INFORMATION
  Report Type: 
  Country: None (occurrence: None)
  Receive Date: 20120507
  Receipt Date: 20120502
  Transmission Date: 20120825
  Serious: No
  Sender: FDA-Public Use
  Company Number: US-PFIZER INC-2012108089

PATIENT
  Sex: Female

DRUGS (2)
  1. CELEBREX [Suspect]
     Indication: ARTHRITIS
     Dosage: UNK
     Dates: end: 20120301
  2. CELEBREX [Suspect]
     Dosage: UNK
     Dates: start: 20120401

REACTIONS (4)
  - ERYTHEMA [None]
  - RASH [None]
  - LIGAMENT SPRAIN [None]
  - PRURITUS [None]
